FAERS Safety Report 12226637 (Version 1)
Quarter: 2016Q1

REPORT INFORMATION
  Report Type: Report from Study
  Country: US (occurrence: US)
  Receive Date: 20160331
  Receipt Date: 20160331
  Transmission Date: 20160526
  Serious: Yes (Hospitalization)
  Sender: FDA-Public Use
  Company Number: PHEH2016US007316

PATIENT
  Sex: Female
  Weight: 78.91 kg

DRUGS (1)
  1. AFINITOR [Suspect]
     Active Substance: EVEROLIMUS
     Indication: RENAL CANCER
     Dosage: 7.5 MG, QD
     Route: 048
     Dates: start: 20151210

REACTIONS (3)
  - Haemoglobin decreased [Unknown]
  - Dehydration [Unknown]
  - Renal impairment [Unknown]
